FAERS Safety Report 8564404-8 (Version None)
Quarter: 2012Q3

REPORT INFORMATION
  Report Type: 
  Country: None (occurrence: None)
  Receive Date: 20120727
  Receipt Date: 20120727
  Transmission Date: 20120928
  Serious: Yes (Life-Threatening)
  Sender: FDA-Public Use
  Company Number: None

PATIENT
  Sex: Female
  Weight: 56.5 kg

DRUGS (2)
  1. SERTRALINE HYDROCHLORIDE [Suspect]
     Indication: DEPRESSION
     Dosage: 50MG DAILY ORAL
     Route: 048
     Dates: start: 20120603, end: 20120608
  2. LINEZOLID [Suspect]
     Indication: PNEUMONIA
     Dosage: 600MG EVERY 12 HOURS INTRAVENOUS
     Route: 042
     Dates: start: 20120501, end: 20120608

REACTIONS (5)
  - PAIN [None]
  - EPSTEIN-BARR VIRUS TEST POSITIVE [None]
  - BLOOD PRESSURE INCREASED [None]
  - ENTEROCOCCUS TEST POSITIVE [None]
  - SEROTONIN SYNDROME [None]
